FAERS Safety Report 18020115 (Version 1)
Quarter: 2020Q3

REPORT INFORMATION
  Report Type: Spontaneous
  Country: US (occurrence: US)
  Receive Date: 20200714
  Receipt Date: 20200714
  Transmission Date: 20201103
  Serious: No
  Sender: FDA-Public Use
  Company Number: None

PATIENT
  Age: 42 Year
  Sex: Female

DRUGS (2)
  1. BUPRENIRPHINE?NALOXONE 8?NG [Concomitant]
     Dates: start: 20190628, end: 20200710
  2. BUPRENORPHINE?NALOXONE 8?2MG [Suspect]
     Active Substance: BUPRENORPHINE HYDROCHLORIDE\NALOXONE HYDROCHLORIDE

REACTIONS (2)
  - Rash [None]
  - Oral mucosal eruption [None]

NARRATIVE: CASE EVENT DATE: 20200710
